FAERS Safety Report 10215005 (Version 2)
Quarter: 2014Q3

REPORT INFORMATION
  Report Type: Spontaneous
  Country: PT (occurrence: PT)
  Receive Date: 20140603
  Receipt Date: 20140707
  Transmission Date: 20150326
  Serious: Yes (Other)
  Sender: FDA-Public Use
  Company Number: PT-009507513-1405PRT015547

PATIENT
  Age: 53 Year
  Sex: Female

DRUGS (6)
  1. EPOETIN [Concomitant]
     Active Substance: ERYTHROPOIETIN
  2. REBETOL [Suspect]
     Active Substance: RIBAVIRIN
     Dosage: 2 + 1 TABLETS
     Route: 048
     Dates: start: 20130703, end: 20131030
  3. REBETOL [Suspect]
     Active Substance: RIBAVIRIN
     Dosage: 2 + 2  TABLETS
     Route: 048
     Dates: start: 20130220, end: 20130703
  4. REBETOL [Suspect]
     Active Substance: RIBAVIRIN
     Indication: HEPATITIS C
     Dosage: 3 TABLETS IN THE MORNING AND 2 TABLETS IN THE EVENING
     Route: 048
     Dates: start: 20121128, end: 20130220
  5. VICTRELIS [Suspect]
     Active Substance: BOCEPREVIR
     Indication: HEPATITIS C
     Dosage: UNK
     Route: 048
     Dates: start: 20121128, end: 20131030
  6. PEGASYS [Suspect]
     Active Substance: PEGINTERFERON ALFA-2A
     Indication: HEPATITIS C
     Dosage: DAILY DOSAGE: 180 MCG/ML
     Dates: start: 20121128, end: 20131030

REACTIONS (2)
  - Drug ineffective [Unknown]
  - Anaemia [Recovered/Resolved]

NARRATIVE: CASE EVENT DATE: 20130220
